FAERS Safety Report 5066468-5 (Version None)
Quarter: 2006Q3

REPORT INFORMATION
  Report Type: 
  Country: None (occurrence: None)
  Receive Date: 20060717
  Receipt Date: 20050208
  Transmission Date: 20061208
  Serious: Yes (Death, Life-Threatening, Other)
  Sender: FDA-Public Use
  Company Number: 2005-02-1405

PATIENT
  Age: 67 Year
  Sex: Female
  Weight: 51.2565 kg

DRUGS (9)
  1. INTEGRILIN [Suspect]
     Indication: PERCUTANEOUS CORONARY INTERVENTION
     Dosage: SEE IMAGE
     Route: 042
     Dates: start: 20031125, end: 20031125
  2. INTEGRILIN [Suspect]
     Indication: PERCUTANEOUS CORONARY INTERVENTION
     Dosage: SEE IMAGE
     Route: 042
     Dates: start: 20031125
  3. ASPIRIN [Suspect]
     Dosage: 325 MG
     Dates: start: 20031101
  4. CLOPIDOGREL [Suspect]
     Dosage: 75 MG
     Dates: start: 20031101
  5. WARFARIN SODIUM [Suspect]
  6. HEPARIN [Suspect]
     Dosage: UNKNOWN BOLUS
     Dates: start: 20031101
  7. LISINOPRIL [Concomitant]
  8. DIGOXIN [Concomitant]
  9. FUROSEMIDE [Concomitant]

REACTIONS (13)
  - BACK PAIN [None]
  - CHEST PAIN [None]
  - DEATH [None]
  - DYSPNOEA [None]
  - HAEMATOMA [None]
  - HYPOTENSION [None]
  - ISCHAEMIA [None]
  - PERIORBITAL OEDEMA [None]
  - SHOCK [None]
  - STENT OCCLUSION [None]
  - TACHYCARDIA [None]
  - THROMBOCYTOPENIA [None]
  - WHEEZING [None]
